FAERS Safety Report 21575854 (Version 1)
Quarter: 2022Q4

REPORT INFORMATION
  Report Type: Report from Study
  Country: GB (occurrence: GB)
  Receive Date: 20221110
  Receipt Date: 20221110
  Transmission Date: 20230113
  Serious: Yes (Hospitalization, Other)
  Sender: FDA-Public Use
  Company Number: GB-GBT-017777

PATIENT
  Age: 48 Year
  Sex: Male
  Weight: 80 kg

DRUGS (3)
  1. VOXELOTOR [Suspect]
     Active Substance: VOXELOTOR
     Indication: Haemolytic anaemia
     Route: 048
     Dates: start: 20220323, end: 20220812
  2. VOXELOTOR [Suspect]
     Active Substance: VOXELOTOR
     Indication: Haemolytic anaemia
     Dosage: AFTER PREVIOUS INTERRUPTION
     Dates: start: 20221018, end: 20221019
  3. HYDROXYUREA [Concomitant]
     Active Substance: HYDROXYUREA
     Indication: Sickle cell disease
     Route: 048
     Dates: start: 2015

REACTIONS (6)
  - Gastrointestinal haemorrhage [Recovered/Resolved]
  - Diarrhoea [Recovered/Resolved]
  - Haemoglobin decreased [Unknown]
  - Diarrhoea [Recovered/Resolved]
  - Therapy cessation [Unknown]
  - Therapy interrupted [Recovered/Resolved]

NARRATIVE: CASE EVENT DATE: 20220801
